FAERS Safety Report 4470576-7 (Version None)
Quarter: 2004Q4

REPORT INFORMATION
  Report Type: 
  Country: None (occurrence: None)
  Receive Date: 20041006
  Receipt Date: 20041006
  Transmission Date: 20050328
  Serious: Yes (Hospitalization)
  Sender: FDA-Public Use
  Company Number: None

PATIENT
  Age: 66 Year
  Sex: Male
  Weight: 75 kg

DRUGS (5)
  1. GEMCITABINE   1GM   ELI LILLY + CO. [Suspect]
     Indication: PANCREATIC CARCINOMA METASTATIC
     Dosage: 1920  WEEKLY X 7  INTRAVENOUS
     Route: 042
     Dates: start: 20040831, end: 20040928
  2. ANZEMET [Concomitant]
  3. ZOFRAN [Concomitant]
  4. METFORMIN HCL [Concomitant]
  5. LISINOPRIL [Concomitant]

REACTIONS (2)
  - ASCITES [None]
  - PLEURAL EFFUSION [None]
